FAERS Safety Report 5680465-8 (Version None)
Quarter: 2008Q1

REPORT INFORMATION
  Report Type: 
  Country: None (occurrence: None)
  Receive Date: 20080326
  Receipt Date: 20080320
  Transmission Date: 20080703
  Serious: Yes (Hospitalization)
  Sender: FDA-Public Use
  Company Number: B0510463A

PATIENT
  Age: 70 Year
  Sex: Female
  Weight: 75 kg

DRUGS (4)
  1. SEROXAT [Suspect]
     Indication: DEPRESSION
     Dosage: 40MG PER DAY
     Route: 048
     Dates: start: 20070101
  2. WELLBUTRIN [Suspect]
     Indication: DEPRESSION
     Dosage: 300MG PER DAY
     Route: 048
     Dates: start: 20071101
  3. XANOR [Concomitant]
     Route: 065
  4. MIRTAZAPINE [Concomitant]
     Indication: DEPRESSION
     Dosage: 30MG PER DAY
     Route: 048

REACTIONS (3)
  - BURNING SENSATION [None]
  - DRUG INTERACTION [None]
  - PRURITUS [None]
